FAERS Safety Report 17133224 (Version 1)
Quarter: 2019Q4

REPORT INFORMATION
  Report Type: Spontaneous
  Country: US (occurrence: US)
  Receive Date: 20191118
  Receipt Date: 20191118
  Transmission Date: 20200122
  Serious: Yes (Hospitalization)
  Sender: FDA-Public Use
  Company Number: None

PATIENT
  Age: 50 Year
  Sex: Female

DRUGS (6)
  1. FOLIC ACID. [Concomitant]
     Active Substance: FOLIC ACID
  2. HYDROXYCHLOROQULNE [Concomitant]
  3. METHOTREXATE. [Concomitant]
     Active Substance: METHOTREXATE
  4. PLAQUENIL [Concomitant]
     Active Substance: HYDROXYCHLOROQUINE SULFATE
  5. CELECOXIB. [Concomitant]
     Active Substance: CELECOXIB
  6. ENBREL [Suspect]
     Active Substance: ETANERCEPT
     Indication: RHEUMATOID ARTHRITIS
     Route: 058
     Dates: start: 20170619

REACTIONS (1)
  - Shoulder operation [None]

NARRATIVE: CASE EVENT DATE: 20191030
